FAERS Safety Report 4380476-9 (Version None)
Quarter: 2004Q2

REPORT INFORMATION
  Report Type: 
  Country: None (occurrence: None)
  Receive Date: 20040618
  Receipt Date: 20040608
  Transmission Date: 20050107
  Serious: Yes (Other)
  Sender: FDA-Public Use
  Company Number: TR-JNJFOC-20040602139

PATIENT
  Age: 20 Year
  Sex: Female

DRUGS (2)
  1. REMICADE [Suspect]
     Dosage: DOSE INCREASED SEVENTH INFUSION
     Route: 042
  2. REMICADE [Suspect]
     Dosage: SIX INFUSIONS ADMINISTERED WITH THIS DOSE
     Route: 042

REACTIONS (2)
  - BREAST DISORDER [None]
  - LYMPHADENOPATHY [None]
